FAERS Safety Report 7910781-8 (Version None)
Quarter: 2011Q4

REPORT INFORMATION
  Report Type: 
  Country: None (occurrence: None)
  Receive Date: 20111112
  Receipt Date: 20111109
  Transmission Date: 20120403
  Serious: Yes (Hospitalization)
  Sender: FDA-Public Use
  Company Number: CA-ABBOTT-11P-028-0849918-00

PATIENT
  Sex: Female
  Weight: 74.456 kg

DRUGS (1)
  1. HUMIRA [Suspect]
     Indication: CROHN'S DISEASE
     Route: 058
     Dates: start: 20080424, end: 20110911

REACTIONS (3)
  - VIITH NERVE PARALYSIS [None]
  - APHASIA [None]
  - ORAL FUNGAL INFECTION [None]
